FAERS Safety Report 4364253-0 (Version None)
Quarter: 2004Q2

REPORT INFORMATION
  Report Type: 
  Country: None (occurrence: None)
  Receive Date: 20040525
  Receipt Date: 20040405
  Transmission Date: 20050107
  Serious: Yes (Death, Other)
  Sender: FDA-Public Use
  Company Number: JP-MERCK-0404USA00986

PATIENT
  Age: 78 Year
  Sex: Male

DRUGS (11)
  1. STRONGER NEO-MINOPHAGEN C [Concomitant]
     Route: 042
     Dates: start: 20040419, end: 20040422
  2. VOLTAREN [Concomitant]
     Route: 054
     Dates: start: 20040331, end: 20040401
  3. RADICUT [Concomitant]
     Route: 041
     Dates: start: 20040404, end: 20040401
  4. PEPCID [Suspect]
     Indication: GASTROINTESTINAL HAEMORRHAGE
     Route: 042
     Dates: start: 20040403, end: 20040405
  5. HALOPERIDOL [Concomitant]
     Route: 030
     Dates: start: 20040419, end: 20040419
  6. LEUPROLIDE ACETATE [Concomitant]
     Route: 058
     Dates: start: 20030513, end: 20040212
  7. PANTHENOL [Concomitant]
     Route: 041
     Dates: start: 20040328, end: 20040421
  8. SOSEGON [Concomitant]
     Route: 030
     Dates: start: 20040402, end: 20040415
  9. PHENOBAL [Concomitant]
     Route: 030
     Dates: start: 20040405, end: 20040407
  10. ALEVIATIN [Concomitant]
     Route: 041
     Dates: start: 20040405, end: 20040407
  11. ALTAT [Concomitant]
     Route: 042
     Dates: start: 20040406, end: 20040413

REACTIONS (9)
  - BLOOD BRAIN BARRIER DEFECT [None]
  - BLOOD PRESSURE DECREASED [None]
  - BRAIN ABSCESS [None]
  - DEPRESSED LEVEL OF CONSCIOUSNESS [None]
  - GASTROINTESTINAL NEOPLASM [None]
  - GENERAL PHYSICAL HEALTH DETERIORATION [None]
  - PLEURAL HAEMORRHAGE [None]
  - RESPIRATORY FAILURE [None]
  - URINE OUTPUT DECREASED [None]
